FAERS Safety Report 14651563 (Version 1)
Quarter: 2018Q1

REPORT INFORMATION
  Report Type: Spontaneous
  Country: FR (occurrence: FR)
  Receive Date: 20180317
  Receipt Date: 20180317
  Transmission Date: 20180509
  Serious: Yes (Other)
  Sender: FDA-Public Use
  Company Number: FR-MERCK KGAA-2043978

PATIENT
  Age: 50 Year
  Sex: Female

DRUGS (1)
  1. NOVOTHYROX [Suspect]
     Active Substance: LEVOTHYROXINE SODIUM
     Indication: THYROID DISORDER

REACTIONS (23)
  - Alopecia [None]
  - Confusional state [None]
  - Asthenia [None]
  - Pain [None]
  - Mood swings [None]
  - Middle insomnia [None]
  - Fatigue [None]
  - Muscular weakness [None]
  - Depression [None]
  - Mood altered [None]
  - Ill-defined disorder [None]
  - Impaired work ability [None]
  - Dizziness [None]
  - Headache [None]
  - Blood pressure decreased [None]
  - Blood thyroid stimulating hormone decreased [None]
  - Vomiting [None]
  - Tachycardia [None]
  - Loss of employment [None]
  - Amnesia [None]
  - Discomfort [None]
  - Somnolence [None]
  - Loss of personal independence in daily activities [None]

NARRATIVE: CASE EVENT DATE: 20170905
